FAERS Safety Report 7389443-4 (Version None)
Quarter: 2011Q2

REPORT INFORMATION
  Report Type: 
  Country: None (occurrence: None)
  Receive Date: 20110401
  Receipt Date: 20110328
  Transmission Date: 20111010
  Serious: Yes (Other)
  Sender: FDA-Public Use
  Company Number: NZ-BRISTOL-MYERS SQUIBB COMPANY-15640295

PATIENT
  Sex: Male
  Weight: 227 kg

DRUGS (1)
  1. GLUCOPHAGE [Suspect]
     Dosage: FOR 8YEARS,2PILLS;MORNING AND 2PILLS AT NIGHT

REACTIONS (2)
  - BLOOD GLUCOSE INCREASED [None]
  - WEIGHT INCREASED [None]
